FAERS Safety Report 5675902-9 (Version None)
Quarter: 2008Q1

REPORT INFORMATION
  Report Type: 
  Country: None (occurrence: None)
  Receive Date: 20080321
  Receipt Date: 20080318
  Transmission Date: 20080703
  Serious: Yes (Hospitalization)
  Sender: FDA-Public Use
  Company Number: B0497573A

PATIENT
  Age: 75 Year
  Sex: Male

DRUGS (12)
  1. VALTREX [Suspect]
     Indication: HERPES ZOSTER
     Dosage: 1000MG THREE TIMES PER DAY
     Route: 048
  2. ZOVIRAX [Suspect]
     Indication: DRUG USE FOR UNKNOWN INDICATION
     Route: 042
  3. CYANOCOBALAMIN [Concomitant]
     Dosage: 1500MCG PER DAY
     Route: 048
  4. SIGMART [Concomitant]
     Dosage: 5MG PER DAY
     Route: 048
  5. FUROSEMIDE [Concomitant]
     Dosage: 20MG PER DAY
     Route: 048
  6. SELOKEN [Concomitant]
     Dosage: 40MG PER DAY
     Route: 048
  7. TAKEPRON [Concomitant]
     Dosage: 15MG PER DAY
     Route: 048
  8. ALLELOCK [Concomitant]
     Dosage: 2.5MG PER DAY
     Route: 048
  9. CALTAN [Concomitant]
     Dosage: 1500MG PER DAY
     Route: 048
  10. DOPS (JAPAN) [Concomitant]
     Dosage: 200MG PER DAY
     Route: 048
  11. ASPIRIN [Concomitant]
     Dosage: 100MG PER DAY
     Route: 048
  12. NORVASC [Concomitant]
     Dosage: 5MG PER DAY
     Route: 048

REACTIONS (4)
  - ALTERED STATE OF CONSCIOUSNESS [None]
  - CONVULSION [None]
  - DIPLOPIA [None]
  - DYSKINESIA [None]
